FAERS Safety Report 6787652-6 (Version None)
Quarter: 2010Q2

REPORT INFORMATION
  Report Type: 
  Country: None (occurrence: None)
  Receive Date: 20100623
  Receipt Date: 20040204
  Transmission Date: 20101027
  Serious: No
  Sender: FDA-Public Use
  Company Number: US-PFIZER INC-2007058932

PATIENT
  Sex: Female

DRUGS (1)
  1. AROMASIN [Suspect]

REACTIONS (3)
  - CONSTIPATION [None]
  - DIARRHOEA [None]
  - NAUSEA [None]
